FAERS Safety Report 24350159 (Version 1)
Quarter: 2024Q3

REPORT INFORMATION
  Report Type: Spontaneous
  Country: US (occurrence: None)
  Receive Date: 20240921
  Receipt Date: 20240921
  Transmission Date: 20241017
  Serious: Yes (Hospitalization)
  Sender: Public
  Company Number: None

PATIENT
  Age: 41 Year
  Sex: Female
  Weight: 76.2 kg

DRUGS (2)
  1. CARBOPLATIN [Suspect]
     Active Substance: CARBOPLATIN
     Dates: end: 20240827
  2. TAXOL [Suspect]
     Active Substance: PACLITAXEL
     Dates: end: 20240827

REACTIONS (10)
  - Arthralgia [None]
  - Muscle spasms [None]
  - Back pain [None]
  - Headache [None]
  - Anaemia [None]
  - Blood alkaline phosphatase abnormal [None]
  - Tachycardia [None]
  - Nasal congestion [None]
  - COVID-19 [None]
  - Sepsis [None]

NARRATIVE: CASE EVENT DATE: 20240917
